FAERS Safety Report 12624723 (Version 1)
Quarter: 2016Q3

REPORT INFORMATION
  Report Type: Spontaneous
  Country: US (occurrence: None)
  Receive Date: 20160804
  Receipt Date: 20160804
  Transmission Date: 20161109
  Serious: Yes (Disabling, Other)
  Sender: FDA-Public Use
  Company Number: None

PATIENT
  Age: 55 Year
  Sex: Male
  Weight: 157.4 kg

DRUGS (12)
  1. TRAMADOL. [Concomitant]
     Active Substance: TRAMADOL
  2. GARLIC. [Concomitant]
     Active Substance: GARLIC
  3. PRAVASTATIN SODIUM. [Concomitant]
     Active Substance: PRAVASTATIN SODIUM
  4. LUTEIN [Concomitant]
     Active Substance: LUTEIN
  5. SYNTHROID [Concomitant]
     Active Substance: LEVOTHYROXINE SODIUM
  6. VITAMIN E [Concomitant]
     Active Substance: .ALPHA.-TOCOPHEROL
  7. FARXIGA [Suspect]
     Active Substance: DAPAGLIFLOZIN PROPANEDIOL
     Indication: WEIGHT CONTROL
     Route: 048
  8. HYDORCODONE/ACETAMINOPHEN [Concomitant]
  9. MULTIVITAMIN [Concomitant]
     Active Substance: VITAMINS
  10. CINNAMON. [Concomitant]
     Active Substance: CINNAMON
  11. GABAPENTIN. [Concomitant]
     Active Substance: GABAPENTIN
  12. ATENOLOL. [Concomitant]
     Active Substance: ATENOLOL

REACTIONS (6)
  - Renal failure [None]
  - Chest discomfort [None]
  - Protein urine present [None]
  - Back pain [None]
  - Headache [None]
  - Diabetes mellitus [None]

NARRATIVE: CASE EVENT DATE: 20150818
